FAERS Safety Report 14024079 (Version 1)
Quarter: 2017Q3

REPORT INFORMATION
  Report Type: Spontaneous
  Country: US (occurrence: None)
  Receive Date: 20170929
  Receipt Date: 20170929
  Transmission Date: 20171128
  Serious: No
  Sender: FDA-Public Use
  Company Number: None

PATIENT
  Age: 97 Year
  Sex: Male

DRUGS (1)
  1. CARBAMAZEPINE. [Suspect]
     Active Substance: CARBAMAZEPINE
     Route: 048
     Dates: start: 20170217, end: 20170221

REACTIONS (4)
  - Tubulointerstitial nephritis [None]
  - Pruritus [None]
  - Urticaria [None]
  - Toxicity to various agents [None]

NARRATIVE: CASE EVENT DATE: 20170221
